FAERS Safety Report 9523642 (Version 4)
Quarter: 2013Q4

REPORT INFORMATION
  Report Type: Spontaneous
  Country: JP (occurrence: JP)
  Receive Date: 20130913
  Receipt Date: 20131126
  Transmission Date: 20140711
  Serious: Yes (Hospitalization, Disabling)
  Sender: FDA-Public Use
  Company Number: JP-B.I. PHARMACEUTICALS,INC./RIDGEFIELD-2013-BI-28503NB

PATIENT
  Age: 69 Year
  Sex: Male
  Weight: 63.3 kg

DRUGS (11)
  1. TRAZENTA [Suspect]
     Indication: TYPE 2 DIABETES MELLITUS
     Dosage: 5 MG
     Route: 048
     Dates: start: 20130413, end: 20130810
  2. HUMALOG N [Concomitant]
     Indication: TYPE 2 DIABETES MELLITUS
     Dosage: 8 ANZ
     Route: 058
     Dates: start: 20110423, end: 20130810
  3. HUMALOG MIX [Concomitant]
     Indication: TYPE 2 DIABETES MELLITUS
     Route: 058
     Dates: start: 20110423, end: 20130810
  4. AMARYL / GLIMEPIRIDE [Concomitant]
     Indication: TYPE 2 DIABETES MELLITUS
     Dosage: 2 ANZ
     Route: 048
     Dates: start: 20110423, end: 20130819
  5. SEIBULE / MIGLITOL [Concomitant]
     Indication: TYPE 2 DIABETES MELLITUS
     Dosage: 150 MG
     Route: 048
     Dates: start: 20110423, end: 20130819
  6. BLOPRESS / CANDESARTAN CILEXETIL [Concomitant]
     Indication: TYPE 2 DIABETES MELLITUS
     Dosage: 8 MG
     Route: 048
     Dates: start: 20110423
  7. ETHYL ICOSAPENTATE / ETHYL ICOSAPENTATE [Concomitant]
     Indication: HYPERLIPIDAEMIA
     Dosage: 600 MCG
     Route: 048
     Dates: start: 20120915
  8. JANUVIA [Concomitant]
     Dosage: 50 MG
     Route: 048
     Dates: start: 20111203, end: 20130412
  9. METHYCOBAL [Concomitant]
     Dosage: 1500 MCG
     Route: 048
  10. EPADEL [Concomitant]
     Dosage: 600 MG
     Route: 048
     Dates: end: 20130819
  11. JANUVIA [Concomitant]

REACTIONS (6)
  - Nephrotic syndrome [Not Recovered/Not Resolved]
  - Cryoglobulinaemia [Unknown]
  - Hypocomplementaemia [Unknown]
  - Glomerulonephritis membranoproliferative [Unknown]
  - Hypoalbuminaemia [Unknown]
  - Blood urine present [Unknown]
